FAERS Safety Report 5585918-9 (Version None)
Quarter: 2008Q1

REPORT INFORMATION
  Report Type: 
  Country: None (occurrence: None)
  Receive Date: 20080109
  Receipt Date: 20071214
  Transmission Date: 20080703
  Serious: No
  Sender: FDA-Public Use
  Company Number: US-BOEHRINGER INGELHEIM PHARMACEUTICALS, INC.-2007-BP-26259BP

PATIENT
  Sex: Female

DRUGS (5)
  1. MIRAPEX [Suspect]
     Indication: RESTLESS LEGS SYNDROME
     Route: 048
     Dates: start: 20050101
  2. LAMICTAL [Suspect]
  3. GEODON [Suspect]
     Indication: BIPOLAR DISORDER
  4. WELLBUTRIN XL [Suspect]
  5. EFFEXOR [Suspect]

REACTIONS (1)
  - ALANINE AMINOTRANSFERASE INCREASED [None]
